FAERS Safety Report 12323711 (Version 1)
Quarter: 2016Q2

REPORT INFORMATION
  Report Type: Spontaneous
  Country: TR (occurrence: TR)
  Receive Date: 20160502
  Receipt Date: 20160502
  Transmission Date: 20160815
  Serious: Yes (Other)
  Sender: FDA-Public Use
  Company Number: TR-JNJFOC-20160426833

PATIENT
  Age: 59 Year
  Sex: Male
  Weight: 27.22 kg

DRUGS (4)
  1. ZINCODAY [Concomitant]
     Route: 048
  2. TAZOPER [Concomitant]
     Indication: INFECTION
     Route: 042
     Dates: start: 20160419, end: 20160428
  3. REMICADE [Suspect]
     Active Substance: INFLIXIMAB
     Indication: HIDRADENITIS
     Route: 042
     Dates: start: 20151224, end: 20160217
  4. INH [Concomitant]
     Active Substance: ISONIAZID
     Indication: PROPHYLAXIS
     Route: 048

REACTIONS (3)
  - Squamous cell carcinoma [Not Recovered/Not Resolved]
  - Product use issue [Unknown]
  - Off label use [Unknown]

NARRATIVE: CASE EVENT DATE: 20151224
